FAERS Safety Report 7763026-6 (Version None)
Quarter: 2011Q3

REPORT INFORMATION
  Report Type: 
  Country: None (occurrence: None)
  Receive Date: 20110920
  Receipt Date: 20110914
  Transmission Date: 20111222
  Serious: Yes (Other)
  Sender: FDA-Public Use
  Company Number: IE-B.I. PHARMACEUTICALS,INC./RIDGEFIELD-2011-UK-00975UK

PATIENT
  Age: 28 Year
  Sex: Male

DRUGS (1)
  1. PRADAXA [Suspect]
     Indication: AORTIC DISSECTION
     Dosage: 300 MG

REACTIONS (1)
  - AORTIC DISSECTION [None]
